FAERS Safety Report 16453037 (Version 6)
Quarter: 2020Q3

REPORT INFORMATION
  Report Type: Spontaneous
  Country: US (occurrence: US)
  Receive Date: 20190619
  Receipt Date: 20200908
  Transmission Date: 20201102
  Serious: No
  Sender: FDA-Public Use
  Company Number: US-SA-2019SA161464

PATIENT

DRUGS (32)
  1. PRADAXA [Concomitant]
     Active Substance: DABIGATRAN ETEXILATE MESYLATE
     Dosage: UNK
  2. XYZAL [Concomitant]
     Active Substance: LEVOCETIRIZINE DIHYDROCHLORIDE
     Dosage: UNK
  3. FAMOTIDINE. [Concomitant]
     Active Substance: FAMOTIDINE
  4. MIRALAX [Concomitant]
     Active Substance: POLYETHYLENE GLYCOL 3350
     Dosage: UNK (POWDER)
  5. ADVIL [IBUPROFEN] [Concomitant]
     Active Substance: IBUPROFEN
     Dosage: UNK
  6. STOOL SOFTENER (DOCUSATE) [Concomitant]
     Active Substance: DOCUSATE
  7. HYDROXYZINE [Concomitant]
     Active Substance: HYDROXYZINE HYDROCHLORIDE
     Dosage: UNK
  8. ALPRAZOLAM. [Concomitant]
     Active Substance: ALPRAZOLAM
     Dosage: UNK
  9. XOLAIR [Concomitant]
     Active Substance: OMALIZUMAB
  10. ZOFRAN [Concomitant]
     Active Substance: ONDANSETRON HYDROCHLORIDE
  11. DUPIXENT [Suspect]
     Active Substance: DUPILUMAB
     Indication: DERMATITIS ALLERGIC
  12. BYSTOLIC [Concomitant]
     Active Substance: NEBIVOLOL HYDROCHLORIDE
     Dosage: UNK
  13. BENADRYL [Concomitant]
     Active Substance: DIPHENHYDRAMINE HYDROCHLORIDE
  14. GABAPENTIN. [Concomitant]
     Active Substance: GABAPENTIN
     Dosage: UNK
  15. BREO ELLIPTA [Concomitant]
     Active Substance: FLUTICASONE FUROATE\VILANTEROL TRIFENATATE
  16. EMERGEN C [Concomitant]
     Active Substance: MINERALS\VITAMINS
  17. LORATADIN [Concomitant]
     Active Substance: LORATADINE
  18. ALBUTEROL [SALBUTAMOL] [Concomitant]
     Active Substance: ALBUTEROL
  19. SKELAXIN [METAXALONE] [Concomitant]
     Dosage: UNK
  20. VENTOLIN [Concomitant]
     Active Substance: ALBUTEROL SULFATE
  21. DUPIXENT [Suspect]
     Active Substance: DUPILUMAB
     Indication: DERMATITIS ATOPIC
     Dosage: 300 MG, QOW
     Route: 058
     Dates: start: 20190516
  22. ZANTAC [Concomitant]
     Active Substance: RANITIDINE HYDROCHLORIDE
     Dosage: UNK
  23. PERCOCET [Concomitant]
     Active Substance: ACETAMINOPHEN\OXYCODONE HYDROCHLORIDE
  24. CITRACAL [CALCIUM CITRATE] [Concomitant]
     Active Substance: CALCIUM CITRATE
  25. MODAFINIL. [Concomitant]
     Active Substance: MODAFINIL
  26. CLARITIN [GLICLAZIDE] [Concomitant]
     Active Substance: GLICLAZIDE
     Dosage: UNK (CHEWABLE TABLETS)
  27. OXYCODONE [Concomitant]
     Active Substance: OXYCODONE
  28. PRILOSEC [Concomitant]
     Active Substance: OMEPRAZOLE MAGNESIUM
     Dosage: UNK
  29. HYDROCHLOROTH [Concomitant]
     Active Substance: HYDROCHLOROTHIAZIDE
     Dosage: UNK
  30. PREDNISONE. [Concomitant]
     Active Substance: PREDNISONE
     Dosage: UNK
  31. CYMBALTA [Concomitant]
     Active Substance: DULOXETINE HYDROCHLORIDE
  32. NIFEDIPINE. [Concomitant]
     Active Substance: NIFEDIPINE
     Dosage: UNK

REACTIONS (9)
  - Dermatitis [Not Recovered/Not Resolved]
  - Rash [Not Recovered/Not Resolved]
  - Flushing [Not Recovered/Not Resolved]
  - Device operational issue [Unknown]
  - Eczema [Not Recovered/Not Resolved]
  - Headache [Not Recovered/Not Resolved]
  - Erythema [Not Recovered/Not Resolved]
  - Nausea [Not Recovered/Not Resolved]
  - Product dose omission issue [Unknown]

NARRATIVE: CASE EVENT DATE: 2019
